FAERS Safety Report 20473683 (Version 2)
Quarter: 2022Q2

REPORT INFORMATION
  Report Type: Other
  Country: AT (occurrence: None)
  Receive Date: 20220215
  Receipt Date: 20220401
  Transmission Date: 20220721
  Serious: Yes (Hospitalization)
  Sender: FDA-Public Use
  Company Number: AT-ROCHE-3018798

PATIENT
  Age: 41 Year
  Sex: Female

DRUGS (60)
  1. TRASTUZUMAB [Suspect]
     Active Substance: TRASTUZUMAB
     Indication: HER2 positive breast cancer
     Route: 041
     Dates: start: 20161020, end: 20161020
  2. TRASTUZUMAB [Suspect]
     Active Substance: TRASTUZUMAB
     Route: 041
     Dates: start: 20190906
  3. TRASTUZUMAB [Suspect]
     Active Substance: TRASTUZUMAB
     Dosage: MOST RECENT DATE OF DRUG ADMINISTRATION PRIOR TO AE: 06/SEP/2019 AND 20/OCT/2016
     Route: 041
     Dates: start: 20170112, end: 20170112
  4. TRASTUZUMAB [Suspect]
     Active Substance: TRASTUZUMAB
     Dosage: MOST RECENT DATE OF DRUG ADMINISTRATION PRIOR TO AE: 08 JAN 2018
     Route: 041
     Dates: start: 20170227
  5. PERTUZUMAB [Suspect]
     Active Substance: PERTUZUMAB
     Indication: HER2 positive breast cancer
     Route: 042
     Dates: start: 20161020, end: 20161020
  6. PERTUZUMAB [Suspect]
     Active Substance: PERTUZUMAB
     Route: 042
     Dates: start: 20190906, end: 20210409
  7. PERTUZUMAB [Suspect]
     Active Substance: PERTUZUMAB
     Route: 042
     Dates: start: 20170112, end: 20170112
  8. PERTUZUMAB [Suspect]
     Active Substance: PERTUZUMAB
     Dosage: MOST RECENT DATE OF DRUG ADMINISTRATION PRIOR TO AE: 8/JAN/2018
     Route: 042
     Dates: start: 20170227
  9. ADO-TRASTUZUMAB EMTANSINE [Suspect]
     Active Substance: ADO-TRASTUZUMAB EMTANSINE
     Indication: HER2 positive breast cancer
     Dosage: MOST RECENT DATE OF DRUG ADMINISTRATION PRIOR TO AE: 16/AUG/2019
     Route: 042
     Dates: start: 20180205
  10. CYCLOPHOSPHAMIDE [Suspect]
     Active Substance: CYCLOPHOSPHAMIDE
     Indication: HER2 positive breast cancer
     Dosage: OTHER
     Route: 042
     Dates: start: 20161005, end: 20161005
  11. TUCATINIB [Suspect]
     Active Substance: TUCATINIB
     Indication: HER2 positive breast cancer
     Route: 048
     Dates: start: 20210430
  12. DOCETAXEL [Suspect]
     Active Substance: DOCETAXEL
     Indication: HER2 positive breast cancer
     Route: 042
     Dates: start: 20161020, end: 20161020
  13. DOCETAXEL [Suspect]
     Active Substance: DOCETAXEL
     Route: 042
     Dates: start: 20161111, end: 20161111
  14. DOCETAXEL [Suspect]
     Active Substance: DOCETAXEL
     Route: 042
     Dates: start: 20161201, end: 20161222
  15. DOCETAXEL [Suspect]
     Active Substance: DOCETAXEL
     Dosage: MOST RECENT DATE OF DRUG ADMINISTRATION PRIOR TO AE: 2/FEB/2017
     Route: 042
     Dates: start: 20170112
  16. EPIRUBICIN [Suspect]
     Active Substance: EPIRUBICIN
     Indication: HER2 positive breast cancer
     Dosage: MOST RECENT DATE OF DRUG ADMINISTRATION PRIOR TO AE: 05/OCT/2016
     Route: 042
     Dates: start: 20161005
  17. CAPECITABINE [Suspect]
     Active Substance: CAPECITABINE
     Indication: HER2 positive breast cancer
     Dosage: DAY 1 - DAY 14, TWICE DAILY
     Route: 048
     Dates: start: 20210430, end: 20210903
  18. CAPECITABINE [Suspect]
     Active Substance: CAPECITABINE
     Dosage: DAY 1 - DAY 14, TWICE DAILY
     Route: 048
     Dates: start: 20210904
  19. VITAMINS WITH MINERALS [Concomitant]
     Active Substance: MINERALS\VITAMINS
     Indication: Osteoporosis
     Dosage: ONGOING = CHECKED
     Route: 048
     Dates: start: 20161112
  20. BISOPROLOL FUMARATE [Concomitant]
     Active Substance: BISOPROLOL FUMARATE
     Indication: Prophylaxis
     Dosage: ONGOING = CHECKED
     Route: 048
     Dates: start: 20170227
  21. BISOPROLOL FUMARATE [Concomitant]
     Active Substance: BISOPROLOL FUMARATE
     Route: 048
     Dates: start: 20161117, end: 20170226
  22. XGEVA [Concomitant]
     Active Substance: DENOSUMAB
     Dosage: ONGOING = CHECKED
     Dates: start: 20161201
  23. SUCRALAN [Concomitant]
     Dosage: ONGOING = NOT CHECKED
  24. SERTRALINE HYDROCHLORIDE [Concomitant]
     Active Substance: SERTRALINE HYDROCHLORIDE
     Dosage: ONGOING = CHECKED
     Dates: start: 20171016
  25. ENTEROBENE [Concomitant]
     Indication: Diarrhoea
     Dosage: ONGOING = CHECKED
     Dates: start: 20171127
  26. RAMIPRIL [Concomitant]
     Active Substance: RAMIPRIL
     Indication: Cardiovascular event prophylaxis
     Dosage: ONGOING = CHECKED
     Dates: start: 20170227
  27. RAMIPRIL [Concomitant]
     Active Substance: RAMIPRIL
     Route: 048
     Dates: start: 20161112, end: 20161221
  28. ONDANSETRON HYDROCHLORIDE [Concomitant]
     Active Substance: ONDANSETRON HYDROCHLORIDE
     Indication: Nausea
     Dosage: ONGOING = CHECKED
     Dates: start: 20181105
  29. HYDROMORPHONE HYDROCHLORIDE [Concomitant]
     Active Substance: HYDROMORPHONE HYDROCHLORIDE
     Indication: Pain
     Dosage: ONGOING = CHECKED
     Route: 048
     Dates: start: 20210410
  30. HYDROMORPHONE HYDROCHLORIDE [Concomitant]
     Active Substance: HYDROMORPHONE HYDROCHLORIDE
     Route: 048
     Dates: end: 201706
  31. HYDROMORPHONE HYDROCHLORIDE [Concomitant]
     Active Substance: HYDROMORPHONE HYDROCHLORIDE
     Route: 048
     Dates: start: 20190816, end: 20210326
  32. HYDROMORPHONE HYDROCHLORIDE [Concomitant]
     Active Substance: HYDROMORPHONE HYDROCHLORIDE
     Route: 048
     Dates: start: 20210326, end: 20210409
  33. DEXIBUPROFEN [Concomitant]
     Active Substance: DEXIBUPROFEN
     Dosage: ONGOING = CHECKED
     Dates: start: 20210312
  34. TAZOBACTAM [Concomitant]
     Active Substance: TAZOBACTAM
     Indication: Febrile neutropenia
     Route: 042
     Dates: start: 20161208, end: 20161212
  35. AMOXICILLIN\CLAVULANATE POTASSIUM [Concomitant]
     Active Substance: AMOXICILLIN\CLAVULANATE POTASSIUM
     Indication: Febrile neutropenia
     Route: 048
     Dates: start: 20161212, end: 20161216
  36. GLANDOMED [Concomitant]
     Indication: Pharyngitis
     Dosage: PRN (AS NEEDED)
     Route: 061
     Dates: start: 20161208, end: 20161222
  37. PERFALGAN [Concomitant]
     Active Substance: ACETAMINOPHEN
     Indication: Febrile neutropenia
     Route: 042
     Dates: start: 20161208, end: 20161212
  38. FILGRASTIM [Concomitant]
     Active Substance: FILGRASTIM
     Indication: Febrile neutropenia
     Route: 042
     Dates: start: 20161208, end: 20161211
  39. XARELTO [Concomitant]
     Active Substance: RIVAROXABAN
     Indication: Thrombosis
     Route: 048
     Dates: start: 20161026, end: 201612
  40. PANTOPRAZOLE SODIUM [Concomitant]
     Active Substance: PANTOPRAZOLE SODIUM
     Route: 048
     Dates: start: 20161031, end: 20161123
  41. SERTRALINE HYDROCHLORIDE [Concomitant]
     Active Substance: SERTRALINE HYDROCHLORIDE
     Route: 048
     Dates: end: 201710
  42. HALCION [Concomitant]
     Active Substance: TRIAZOLAM
     Indication: Sleep disorder
     Route: 048
     Dates: start: 2016, end: 201702
  43. HALDOL [Concomitant]
     Active Substance: HALOPERIDOL
     Indication: Nausea
     Route: 048
     Dates: end: 201702
  44. FENTANYL [Concomitant]
     Active Substance: FENTANYL
     Indication: Pain
     Route: 062
     Dates: end: 201706
  45. PASPERTIN [Concomitant]
     Indication: Nausea
     Dosage: 3 AMPULE
     Route: 042
     Dates: end: 20161113
  46. ALPRAZOLAM [Concomitant]
     Active Substance: ALPRAZOLAM
     Route: 048
     Dates: start: 20161117
  47. LASIX [Concomitant]
     Active Substance: FUROSEMIDE
     Indication: Oedema
     Route: 042
     Dates: start: 20161112, end: 201611
  48. LASIX [Concomitant]
     Active Substance: FUROSEMIDE
     Route: 048
     Dates: start: 20161114
  49. CEOLAT [Concomitant]
     Indication: Nausea
     Route: 048
     Dates: start: 20161112, end: 20161221
  50. POTASSIUM CHLORIDE [Concomitant]
     Active Substance: POTASSIUM CHLORIDE
     Indication: Hypokalaemia
     Route: 048
     Dates: start: 20161117, end: 201702
  51. MOVICOL [Concomitant]
     Active Substance: POLYETHYLENE GLYCOL 3350\POTASSIUM CHLORIDE\SODIUM BICARBONATE\SODIUM CHLORIDE
     Route: 048
  52. OPTIFIBRE [Concomitant]
     Route: 048
     Dates: end: 201706
  53. ZOFRAN [Concomitant]
     Active Substance: ONDANSETRON HYDROCHLORIDE
     Indication: Nausea
     Route: 048
     Dates: start: 20161123, end: 20170204
  54. ARANESP [Concomitant]
     Active Substance: DARBEPOETIN ALFA
     Indication: Anaemia
     Dates: start: 20161201, end: 201701
  55. XGEVA [Concomitant]
     Active Substance: DENOSUMAB
     Route: 042
     Dates: start: 20161201
  56. DEXAMETHASONE [Concomitant]
     Active Substance: DEXAMETHASONE
     Indication: Prophylaxis
     Route: 048
     Dates: start: 20161202, end: 20161203
  57. LIPEGFILGRASTIM [Concomitant]
     Active Substance: LIPEGFILGRASTIM
     Indication: Neutropenia
     Route: 058
     Dates: start: 20170113, end: 20170203
  58. IMODIUM [Concomitant]
     Active Substance: LOPERAMIDE HYDROCHLORIDE
     Indication: Diarrhoea
     Route: 048
     Dates: start: 20171106
  59. METOCLOPRAMIDE [Concomitant]
     Active Substance: METOCLOPRAMIDE
     Route: 042
     Dates: start: 20180205, end: 20190816
  60. DEXAMETHASONE [Concomitant]
     Active Substance: DEXAMETHASONE
     Route: 048
     Dates: start: 20180817, end: 20180831

REACTIONS (1)
  - Epilepsy [Unknown]

NARRATIVE: CASE EVENT DATE: 20220131
